FAERS Safety Report 8044336-4 (Version None)
Quarter: 2012Q1

REPORT INFORMATION
  Report Type: 
  Country: None (occurrence: None)
  Receive Date: 20120111
  Receipt Date: 20120111
  Transmission Date: 20120608
  Serious: Yes (Death)
  Sender: FDA-Public Use
  Company Number: None

PATIENT
  Sex: Male

DRUGS (15)
  1. REVLIMID [Suspect]
     Indication: PLASMACYTOMA
     Dosage: REVLIMID 10MG DAILY X21D/28D ORALLY
     Route: 048
     Dates: start: 20110501
  2. PREDNISONE TAB [Concomitant]
  3. PROGRAF [Concomitant]
  4. GLIPIZIDE [Concomitant]
  5. ALLOPURINOL [Concomitant]
  6. REVLIMID [Suspect]
     Indication: PLASMACYTOMA
     Dosage: REVLIMID 15MG EVERY OTHER DAY FOR 21D/28D ORALLY
     Route: 048
     Dates: start: 20110401
  7. ACTOS [Concomitant]
  8. FOLIC ACID [Concomitant]
  9. NEOPHRO-VITE [Concomitant]
  10. ASPIRIN [Concomitant]
  11. DEXAMETHASONE TAB [Concomitant]
  12. LIPITOR [Concomitant]
  13. PREDNISONE TAB [Concomitant]
  14. METOPROLOL [Concomitant]
  15. FAMOTIDINE [Concomitant]

REACTIONS (8)
  - NEOPLASM PROGRESSION [None]
  - RENAL FAILURE [None]
  - DIALYSIS [None]
  - PLASMACYTOMA [None]
  - DYSPNOEA [None]
  - IMMUNOSUPPRESSION [None]
  - EJECTION FRACTION DECREASED [None]
  - TRANSPLANT REJECTION [None]
